FAERS Safety Report 9346774 (Version 2)
Quarter: 2013Q3

REPORT INFORMATION
  Report Type: Report from Study
  Country: IL (occurrence: IL)
  Receive Date: 20130613
  Receipt Date: 20130703
  Transmission Date: 20140515
  Serious: Yes (Other)
  Sender: FDA-Public Use
  Company Number: IL-BAYER-2013-072391

PATIENT
  Age: 48 Year
  Sex: Female

DRUGS (1)
  1. BETAFERON [Suspect]
     Indication: MULTIPLE SCLEROSIS
     Dosage: UNK
     Dates: start: 20010207

REACTIONS (3)
  - Injection site abscess [Recovered/Resolved]
  - Injection site pain [Recovered/Resolved]
  - Injection site reaction [None]
